FAERS Safety Report 14509379 (Version 1)
Quarter: 2018Q1

REPORT INFORMATION
  Report Type: Spontaneous
  Country: US (occurrence: US)
  Receive Date: 20180207
  Receipt Date: 20180207
  Transmission Date: 20180509
  Serious: Yes (Hospitalization)
  Sender: FDA-Public Use
  Company Number: None

PATIENT
  Sex: Female

DRUGS (1)
  1. EPCLUSA [Suspect]
     Active Substance: SOFOSBUVIR\VELPATASVIR
     Indication: HEPATITIS C
     Dosage: 400MG/100MG ONE DAILY ORAL
     Route: 048

REACTIONS (3)
  - Nausea [None]
  - Abdominal pain upper [None]
  - Contusion [None]

NARRATIVE: CASE EVENT DATE: 2017
